FAERS Safety Report 11194153 (Version 2)
Quarter: 2015Q3

REPORT INFORMATION
  Report Type: Spontaneous
  Country: US (occurrence: US)
  Receive Date: 20150616
  Receipt Date: 20150806
  Transmission Date: 20151125
  Serious: No
  Sender: FDA-Public Use
  Company Number: US-009507513-1506USA008208

PATIENT
  Age: 56 Year
  Sex: Female
  Weight: 62.59 kg

DRUGS (4)
  1. JANUVIA [Suspect]
     Active Substance: SITAGLIPTIN PHOSPHATE
     Indication: DIABETES MELLITUS
     Dosage: 25 MG, ONCE DAILY
     Route: 048
     Dates: start: 20150515, end: 201506
  2. LASIX [Concomitant]
     Active Substance: FUROSEMIDE
     Dosage: AS NEEDED
  3. METFORMIN [Concomitant]
     Active Substance: METFORMIN HYDROCHLORIDE
     Dosage: 1000 MG, BID
  4. VITAMINS (UNSPECIFIED) [Concomitant]
     Active Substance: VITAMINS

REACTIONS (3)
  - Headache [Recovering/Resolving]
  - Discomfort [Unknown]
  - Neck mass [Recovering/Resolving]

NARRATIVE: CASE EVENT DATE: 201505
